FAERS Safety Report 18272830 (Version 1)
Quarter: 2020Q3

REPORT INFORMATION
  Report Type: Report from Study
  Country: FR (occurrence: FR)
  Receive Date: 20200916
  Receipt Date: 20200916
  Transmission Date: 20201103
  Serious: Yes (Other)
  Sender: FDA-Public Use
  Company Number: FR-JNJFOC-20200909806

PATIENT

DRUGS (2)
  1. REMICADE [Suspect]
     Active Substance: INFLIXIMAB
     Indication: UVEITIS
     Dosage: AT WEEKS 0, 2, 6, AND THEN EVERY 4, 6 OR 8 WEEKS
     Route: 042
  2. ADALIMUMAB [Suspect]
     Active Substance: ADALIMUMAB
     Indication: UVEITIS

REACTIONS (15)
  - Anaphylactic reaction [Unknown]
  - Neoplasm malignant [Unknown]
  - Hypersensitivity [Unknown]
  - Autoimmune disorder [Unknown]
  - Gastrointestinal haemorrhage [Unknown]
  - Suicidal ideation [Unknown]
  - Infection [Unknown]
  - Hepatic enzyme increased [Unknown]
  - Off label use [Unknown]
  - Drug ineffective for unapproved indication [Unknown]
  - Psoriasis [Unknown]
  - Headache [Unknown]
  - Depression [Unknown]
  - Hallucination [Unknown]
  - Gastroenteritis [Unknown]
